FAERS Safety Report 11699911 (Version 1)
Quarter: 2015Q4

REPORT INFORMATION
  Report Type: Spontaneous
  Country: US (occurrence: None)
  Receive Date: 20151104
  Receipt Date: 20151104
  Transmission Date: 20160304
  Serious: Yes (Hospitalization)
  Sender: FDA-Public Use
  Company Number: None

PATIENT
  Age: 75 Year
  Sex: Male
  Weight: 59.7 kg

DRUGS (2)
  1. NITROGLYCERIN. [Suspect]
     Active Substance: NITROGLYCERIN
     Indication: ANGINA PECTORIS
     Dosage: 1 PRN TOP
     Route: 061
     Dates: start: 20130914
  2. ISOSORBIDE MONONITRATE. [Suspect]
     Active Substance: ISOSORBIDE MONONITRATE
     Indication: CORONARY ARTERY DISEASE
     Route: 048
     Dates: start: 20150520, end: 20150529

REACTIONS (8)
  - Palpitations [None]
  - Headache [None]
  - Musculoskeletal pain [None]
  - Pain [None]
  - Chest pain [None]
  - Dizziness [None]
  - Pulmonary pain [None]
  - Middle insomnia [None]

NARRATIVE: CASE EVENT DATE: 20150529
